FAERS Safety Report 18535106 (Version 1)
Quarter: 2020Q4

REPORT INFORMATION
  Report Type: Spontaneous
  Country: US (occurrence: US)
  Receive Date: 20201123
  Receipt Date: 20201123
  Transmission Date: 20210114
  Serious: Yes (Life-Threatening, Hospitalization, Other)
  Sender: FDA-Public Use
  Company Number: US-PURDUE-USA-2020-0177353

PATIENT
  Sex: Male
  Weight: 129.3 kg

DRUGS (12)
  1. GABAPENTIN. [Suspect]
     Active Substance: GABAPENTIN
     Indication: NEURALGIA
     Dosage: 600 MG, DAILY
     Route: 065
     Dates: start: 2010, end: 2019
  2. CLONAZEPAM. [Suspect]
     Active Substance: CLONAZEPAM
     Dosage: 0.5 MG, TID
     Route: 065
  3. ZOFRAN [Suspect]
     Active Substance: ONDANSETRON HYDROCHLORIDE
     Indication: ABDOMINAL PAIN UPPER
     Dosage: 4 MG, TID PRN
     Route: 065
  4. OXYCODONE HYDROCHLORIDE (SIMILAR TO NDA 22-272) [Suspect]
     Active Substance: OXYCODONE HYDROCHLORIDE
     Dosage: 5 MG, UNK
     Route: 048
  5. OXYCODONE HYDROCHLORIDE (SIMILAR TO NDA 22-272) [Suspect]
     Active Substance: OXYCODONE HYDROCHLORIDE
     Indication: NEURALGIA
     Route: 048
  6. NEUROTIN                           /00949202/ [Suspect]
     Active Substance: LEVACECARNINE HYDROCHLORIDE
     Indication: PRODUCT USED FOR UNKNOWN INDICATION
     Route: 065
  7. RANIDINE /00550801/ [Suspect]
     Active Substance: RANITIDINE
     Indication: ABDOMINAL DISCOMFORT
     Dosage: 1 TABLET, DAILY
     Route: 065
     Dates: start: 2012, end: 2018
  8. LOVASTATIN. [Suspect]
     Active Substance: LOVASTATIN
     Indication: PRODUCT USED FOR UNKNOWN INDICATION
     Route: 065
  9. OXYCODONE HYDROCHLORIDE (SIMILAR TO NDA 22-272) [Suspect]
     Active Substance: OXYCODONE HYDROCHLORIDE
     Dosage: 10 MG, UNK
     Route: 048
  10. TOPIRAMATE. [Suspect]
     Active Substance: TOPIRAMATE
     Indication: PRODUCT USED FOR UNKNOWN INDICATION
     Dosage: UNK
     Route: 065
     Dates: start: 2010
  11. CLONAZEPAM. [Suspect]
     Active Substance: CLONAZEPAM
     Indication: ANXIETY
     Dosage: 1 MG, QID
     Route: 065
  12. CELEBREX [Suspect]
     Active Substance: CELECOXIB
     Indication: PRODUCT USED FOR UNKNOWN INDICATION
     Dosage: 200 MG, DAILY
     Route: 065

REACTIONS (25)
  - Road traffic accident [Unknown]
  - Hypoacusis [Unknown]
  - Pain [Unknown]
  - Metabolic surgery [Unknown]
  - Foot operation [Unknown]
  - Seizure [Not Recovered/Not Resolved]
  - Dental caries [Unknown]
  - Nausea [Unknown]
  - Dry mouth [Unknown]
  - Depression [Unknown]
  - Scar [Unknown]
  - Scab [Unknown]
  - Tooth loss [Unknown]
  - Anal incontinence [Unknown]
  - Memory impairment [Unknown]
  - Hospitalisation [Unknown]
  - Amnesia [Unknown]
  - Suicide attempt [Unknown]
  - Pain in extremity [Unknown]
  - Migraine [Unknown]
  - Feeling abnormal [Unknown]
  - Procedural complication [Unknown]
  - Surgery [Unknown]
  - Feeding disorder [Unknown]
  - Unevaluable event [Unknown]

NARRATIVE: CASE EVENT DATE: 2012
